FAERS Safety Report 9540718 (Version 2)
Quarter: 2013Q3

REPORT INFORMATION
  Report Type: Report from Study
  Country: ES (occurrence: ES)
  Receive Date: 20130920
  Receipt Date: 20130925
  Transmission Date: 20140515
  Serious: Yes (Hospitalization)
  Sender: FDA-Public Use
  Company Number: ES-PFIZER INC-2013269687

PATIENT
  Age: 64 Year
  Sex: Male

DRUGS (6)
  1. ARTILOG [Suspect]
     Indication: GOUT
     Dosage: 200 MG, 1X/DAY
     Route: 048
     Dates: start: 20101123, end: 20101126
  2. ARTROTEC [Interacting]
     Indication: GOUT
     Dosage: 1 DF, 3X/DAY
     Route: 048
     Dates: start: 20101123, end: 20101124
  3. SEGURIL [Interacting]
     Dosage: 40 MG, 1X/DAY
     Route: 048
  4. IBUPROFEN [Interacting]
     Dosage: 1.2 G, 1X/DAY
     Route: 048
  5. EUTIROX [Concomitant]
     Dosage: 50 UG, 1X/DAY
     Route: 048
     Dates: start: 20100224
  6. SINTROM [Concomitant]
     Dosage: UNK, DAILY
     Route: 048

REACTIONS (2)
  - Drug interaction [Recovered/Resolved]
  - Renal failure acute [Recovered/Resolved]
